FAERS Safety Report 5649517-2 (Version None)
Quarter: 2008Q1

REPORT INFORMATION
  Report Type: 
  Country: None (occurrence: None)
  Receive Date: 20080304
  Receipt Date: 20080222
  Transmission Date: 20080703
  Serious: Yes (Other)
  Sender: FDA-Public Use
  Company Number: BR-PFIZER INC-2008017548

PATIENT
  Sex: Female

DRUGS (1)
  1. FRONTAL [Suspect]
     Route: 048

REACTIONS (1)
  - INTESTINAL DILATATION [None]
